FAERS Safety Report 7278374-6 (Version None)
Quarter: 2011Q1

REPORT INFORMATION
  Report Type: 
  Country: None (occurrence: None)
  Receive Date: 20110207
  Receipt Date: 20110201
  Transmission Date: 20110831
  Serious: Yes (Hospitalization, Disabling)
  Sender: FDA-Public Use
  Company Number: FR-MERCK-97036185

PATIENT
  Age: 38 Year
  Sex: Female
  Weight: 56 kg

DRUGS (2)
  1. NOROXIN [Suspect]
     Indication: URINARY TRACT INFECTION
     Route: 048
     Dates: start: 19961101, end: 19961106
  2. ETHINYL ESTRADIOL AND NORGESTREL FORM [Concomitant]
     Route: 065

REACTIONS (6)
  - CHONDROPATHY [None]
  - TENDONITIS [None]
  - PHLEBITIS [None]
  - PHOTOSENSITIVITY REACTION [None]
  - TENDON RUPTURE [None]
  - LIVER DISORDER [None]
